FAERS Safety Report 10209843 (Version 1)
Quarter: 2014Q2

REPORT INFORMATION
  Report Type: Report from Study
  Country: US (occurrence: US)
  Receive Date: 20140602
  Receipt Date: 20140602
  Transmission Date: 20141212
  Serious: No
  Sender: FDA-Public Use
  Company Number: US-009507513-1405USA011732

PATIENT
  Age: 69 Year
  Sex: Female

DRUGS (18)
  1. MK-3475 [Suspect]
     Indication: METASTATIC MALIGNANT MELANOMA
     Dosage: 2 MG/KG, Q3W, FIRST DOSE: 140 MG
     Route: 042
     Dates: start: 20140424, end: 20140424
  2. MK-3475 [Suspect]
     Dosage: 2 MG/KG, Q3W, SECOND DOSE: 139 MG
     Route: 042
     Dates: start: 20140515, end: 20140515
  3. ONDANSETRON [Concomitant]
     Indication: NAUSEA
     Dosage: TOTAL DAILY DOSE 24 MG, PRN
     Route: 048
     Dates: start: 20140414
  4. ASPIRIN [Concomitant]
     Dosage: 81 MG, QD
     Route: 048
  5. CLARITIN [Concomitant]
     Dosage: 10 MG, QD
     Route: 048
  6. GAS-X [Concomitant]
     Indication: ABDOMINAL DISCOMFORT
     Dosage: ONE TIME DAILY AS NEEDED
     Route: 048
  7. IMODIUM [Concomitant]
     Dosage: ONE TABLET AS DIRECTED AS NEEDED
     Route: 048
  8. PRINIVIL [Concomitant]
     Dosage: 2.5 MG, QD
     Route: 048
  9. LORAZEPAM [Concomitant]
     Indication: ANXIETY
     Dosage: TWO TIMES A DAY AS NEEDED
     Route: 048
  10. LORAZEPAM [Concomitant]
     Indication: INSOMNIA
  11. METOPROLOL TARTRATE [Concomitant]
     Dosage: TOTAL DAILY DOSE 50 MG, TWO TIMES A DAY
     Route: 048
  12. VITAMINS (UNSPECIFIED) [Concomitant]
     Dosage: 1 TABLET, ONE TIME DAILY
     Route: 048
  13. PRAVASTATIN SODIUM [Concomitant]
     Dosage: UNK, QD
     Route: 048
  14. PRILOSEC [Concomitant]
     Dosage: 20 MG, BID
     Route: 048
  15. SUDAFED PE [Concomitant]
     Indication: HYPERSENSITIVITY
     Dosage: AS DIRECTED AS NEEDED
     Route: 048
  16. TYLENOL ARTHRITIS PAIN [Concomitant]
     Indication: PAIN
     Dosage: EVERY 6 HOURS AS NEEDED
     Route: 048
  17. TYLENOL PM [Concomitant]
     Dosage: UNK, HS
     Route: 048
  18. CHOLECALCIFEROL [Concomitant]
     Dosage: 2000 UNIT ONE TIME DAILY, STRENGTH: 2000 UNIT
     Route: 048

REACTIONS (1)
  - Nausea [Not Recovered/Not Resolved]
